FAERS Safety Report 26176641 (Version 1)
Quarter: 2025Q4

REPORT INFORMATION
  Report Type: Spontaneous
  Country: AU (occurrence: AU)
  Receive Date: 20251218
  Receipt Date: 20251218
  Transmission Date: 20260117
  Serious: Yes (Hospitalization, Other)
  Sender: NOVO NORDISK
  Company Number: None

PATIENT
  Sex: Male

DRUGS (4)
  1. LANTUS [Suspect]
     Active Substance: INSULIN GLARGINE
     Indication: Product used for unknown indication
     Dosage: UNK
  2. LEVEMIR [Suspect]
     Active Substance: INSULIN DETEMIR
     Indication: Product used for unknown indication
     Dosage: UNK
  3. NOVORAPID [Suspect]
     Active Substance: INSULIN ASPART
     Indication: Product used for unknown indication
     Dosage: UNK
  4. TOUJEO [Suspect]
     Active Substance: INSULIN GLARGINE
     Indication: Product used for unknown indication
     Dosage: UNK

REACTIONS (19)
  - Infection [Unknown]
  - Mental impairment [Unknown]
  - Mental disorder [Unknown]
  - Retinopathy [Unknown]
  - Blood glucose decreased [Unknown]
  - Neuropathy peripheral [Unknown]
  - Mental disorder [Unknown]
  - Anxiety [Unknown]
  - Burnout syndrome [Unknown]
  - Cardiovascular disorder [Unknown]
  - Depression [Unknown]
  - Disturbance in attention [Unknown]
  - Hypoaesthesia [Unknown]
  - Initial insomnia [Unknown]
  - Nephropathy [Unknown]
  - Paraesthesia [Unknown]
  - Urine analysis abnormal [Unknown]
  - Visual impairment [Unknown]
  - Contraindicated product administered [Unknown]
